FAERS Safety Report 18144659 (Version 2)
Quarter: 2020Q3

REPORT INFORMATION
  Report Type: Spontaneous
  Country: IT (occurrence: IT)
  Receive Date: 20200813
  Receipt Date: 20200818
  Transmission Date: 20201103
  Serious: Yes (Hospitalization)
  Sender: FDA-Public Use
  Company Number: IT-ALLERGAN-2029882US

PATIENT
  Sex: Female
  Weight: 83 kg

DRUGS (10)
  1. DONAMET [Suspect]
     Active Substance: ADEMETIONINE
     Indication: MAJOR DEPRESSION
     Dosage: 500 MG, QD
     Route: 041
     Dates: start: 20200619, end: 20200627
  2. LAEVOLAC [Suspect]
     Active Substance: LACTULOSE
     Indication: CONSTIPATION
     Dosage: 2 DF, PRN
     Route: 048
     Dates: start: 20200618, end: 20200702
  3. FOSFOMYCIN TROMETHAMINE ? BP [Suspect]
     Active Substance: FOSFOMYCIN TROMETHAMINE
     Indication: CYSTITIS
     Dosage: 3 G, QD
     Route: 048
     Dates: start: 20200622, end: 20200623
  4. VENLAFAXINE [Suspect]
     Active Substance: VENLAFAXINE HYDROCHLORIDE
     Indication: MAJOR DEPRESSION
     Dosage: 225 MG, QD
     Route: 048
     Dates: start: 20200617, end: 20200629
  5. TALOFEN [Suspect]
     Active Substance: PROMAZINE HYDROCHLORIDE
     Indication: NERVOUSNESS
     Dosage: 35 GTT, QD
     Route: 048
     Dates: start: 20200524, end: 20200707
  6. PANTOPRAZOLE [Suspect]
     Active Substance: PANTOPRAZOLE
     Indication: GASTROOESOPHAGEAL REFLUX DISEASE
     Dosage: 40 MG, QD
     Route: 048
     Dates: start: 20200617, end: 20200703
  7. DELORAZEPAM [Suspect]
     Active Substance: DELORAZEPAM
     Indication: ANXIETY
     Dosage: 6 MG, QD
     Route: 048
     Dates: start: 20200524, end: 20200607
  8. ESCITALOPRAM [Concomitant]
     Active Substance: ESCITALOPRAM OXALATE
     Indication: MAJOR DEPRESSION
     Dosage: 20 MG, QD
     Route: 048
     Dates: start: 20200524, end: 20200624
  9. CARIPRAZINE [Suspect]
     Active Substance: CARIPRAZINE
     Indication: MAJOR DEPRESSION
     Dosage: 3 MG, QD
     Route: 048
     Dates: start: 20191210, end: 20200702
  10. BISOPROLOL [Concomitant]
     Active Substance: BISOPROLOL
     Indication: SINUS TACHYCARDIA
     Dosage: 1.25 MG, QD
     Route: 048
     Dates: start: 20200524

REACTIONS (5)
  - Skin abrasion [Recovered/Resolved]
  - Mechanical urticaria [Recovered/Resolved]
  - Pruritus [Recovered/Resolved]
  - Erythema nodosum [Recovered/Resolved]
  - Drug interaction [Unknown]

NARRATIVE: CASE EVENT DATE: 20200626
